FAERS Safety Report 21523126 (Version 2)
Quarter: 2022Q4

REPORT INFORMATION
  Report Type: Report from Study
  Country: US (occurrence: US)
  Receive Date: 20221029
  Receipt Date: 20221216
  Transmission Date: 20230113
  Serious: No
  Sender: FDA-Public Use
  Company Number: US-SA-SAC20221021000178

PATIENT
  Age: 35 Year
  Sex: Female

DRUGS (8)
  1. TERIFLUNOMIDE [Suspect]
     Active Substance: TERIFLUNOMIDE
     Indication: Multiple sclerosis
     Dosage: 14 MG, QD
     Route: 048
  2. DOXEPIN [Concomitant]
     Active Substance: DOXEPIN
  3. EFFEXOR [Concomitant]
     Active Substance: VENLAFAXINE HYDROCHLORIDE
  4. METOCLOPRAMIDE [Concomitant]
     Active Substance: METOCLOPRAMIDE
  5. MIRTAZAPINE [Concomitant]
     Active Substance: MIRTAZAPINE
  6. NUEDEXTA [Concomitant]
     Active Substance: DEXTROMETHORPHAN HYDROBROMIDE\QUINIDINE SULFATE
  7. ATENOLOL [Concomitant]
     Active Substance: ATENOLOL
  8. TOPIRAMATE [Concomitant]
     Active Substance: TOPIRAMATE

REACTIONS (4)
  - Pain [Not Recovered/Not Resolved]
  - Red blood cell sedimentation rate increased [Not Recovered/Not Resolved]
  - Hepatic lesion [Not Recovered/Not Resolved]
  - Liver function test increased [Not Recovered/Not Resolved]

NARRATIVE: CASE EVENT DATE: 20221012
